FAERS Safety Report 11398086 (Version 1)
Quarter: 2015Q3

REPORT INFORMATION
  Report Type: Spontaneous
  Country: GR (occurrence: GR)
  Receive Date: 20150820
  Receipt Date: 20150820
  Transmission Date: 20151125
  Serious: Yes (Hospitalization)
  Sender: FDA-Public Use
  Company Number: GR-ROCHE-1622049

PATIENT
  Age: 60 Year
  Sex: Female
  Weight: 65 kg

DRUGS (7)
  1. ROACTEMRA [Suspect]
     Active Substance: TOCILIZUMAB
     Indication: RHEUMATOID ARTHRITIS
     Dosage: 8MG PER KG OF BODY WEIGHT EVERY 4 WEEKS
     Route: 042
     Dates: start: 201404
  2. SALOSPIR [Suspect]
     Active Substance: ASPIRIN\CAFFEINE
     Indication: CORONARY ARTERY DISEASE
     Route: 048
     Dates: start: 2013
  3. CLOVELEN [Suspect]
     Active Substance: CLOPIDOGREL BISULFATE
     Indication: CORONARY ARTERY DISEASE
     Route: 048
     Dates: start: 2013
  4. METOJECT [Concomitant]
     Active Substance: METHOTREXATE SODIUM
     Indication: RHEUMATOID ARTHRITIS
     Route: 058
  5. CARVEDILEN [Concomitant]
     Indication: CORONARY ARTERY DISEASE
     Dosage: HALF A DOSAGE FORM TWICE DAILY
     Route: 048
     Dates: start: 2013
  6. OZILEN [Concomitant]
     Indication: OSTEOPOROSIS
     Route: 048
     Dates: start: 2013
  7. PREZOLON [Suspect]
     Active Substance: PREDNISOLONE
     Indication: RHEUMATOID ARTHRITIS
     Route: 048
     Dates: start: 2000

REACTIONS (2)
  - Lower gastrointestinal haemorrhage [Recovered/Resolved]
  - Large intestinal ulcer [Recovered/Resolved]

NARRATIVE: CASE EVENT DATE: 20150712
